FAERS Safety Report 15098299 (Version 2)
Quarter: 2018Q3

REPORT INFORMATION
  Report Type: Spontaneous
  Country: IE (occurrence: IE)
  Receive Date: 20180702
  Receipt Date: 20180719
  Transmission Date: 20181010
  Serious: Yes (Other)
  Sender: FDA-Public Use
  Company Number: IE-AMGEN-IRLSP2018087289

PATIENT
  Age: 78 Year
  Sex: Female

DRUGS (5)
  1. IBUPROFEN. [Concomitant]
     Active Substance: IBUPROFEN
     Indication: SPINAL PAIN
     Dosage: UNK
     Route: 048
     Dates: start: 20180514
  2. PROCORALAN [Suspect]
     Active Substance: IVABRADINE
     Indication: ANGINA PECTORIS
     Dosage: 2.5 MG, BID
     Route: 048
     Dates: start: 20180525, end: 20180619
  3. PARACETAMOL [Concomitant]
     Active Substance: ACETAMINOPHEN
     Indication: SPINAL PAIN
     Dosage: 3?4 G DAILY
  4. LERCANIDIPINE [Concomitant]
     Active Substance: LERCANIDIPINE
     Indication: HYPERTENSION
     Dosage: 100 MG, QD
  5. VALSARTAN. [Concomitant]
     Active Substance: VALSARTAN
     Indication: HYPERTENSION
     Dosage: 160 MG, QD
     Route: 048

REACTIONS (5)
  - Sleep disorder [Recovered/Resolved]
  - Hallucination, visual [Recovered/Resolved]
  - Contraindicated product administered [Recovered/Resolved]
  - Respiratory tract infection [Recovered/Resolved]
  - Blood pressure increased [Recovered/Resolved]

NARRATIVE: CASE EVENT DATE: 20180604
